FAERS Safety Report 4519595-2 (Version None)
Quarter: 2004Q4

REPORT INFORMATION
  Report Type: 
  Country: None (occurrence: None)
  Receive Date: 20041206
  Receipt Date: 20041130
  Transmission Date: 20050328
  Serious: Yes (Death, Life-Threatening, Hospitalization, Disabling)
  Sender: FDA-Public Use
  Company Number: US-MERCK-0412USA00052

PATIENT
  Age: 85 Year
  Sex: Female

DRUGS (7)
  1. VIOXX [Suspect]
     Indication: ARTHRITIS
     Route: 048
     Dates: start: 20020101, end: 20040930
  2. PRAVACHOL [Concomitant]
     Route: 065
  3. ASPIRIN [Concomitant]
     Route: 065
  4. LORAZEPAM [Concomitant]
     Route: 065
  5. ALLEGRA [Concomitant]
     Route: 065
  6. LISINOPRIL [Concomitant]
     Route: 065
  7. TRIAMTERENE [Concomitant]
     Route: 065

REACTIONS (1)
  - CEREBROVASCULAR ACCIDENT [None]
